FAERS Safety Report 12758453 (Version 2)
Quarter: 2016Q3

REPORT INFORMATION
  Report Type: Spontaneous
  Country: US (occurrence: US)
  Receive Date: 20160919
  Receipt Date: 20160928
  Transmission Date: 20161109
  Serious: Yes (Hospitalization)
  Sender: FDA-Public Use
  Company Number: US-009507513-1609USA007539

PATIENT
  Age: 29 Year
  Sex: Female
  Weight: 94.33 kg

DRUGS (1)
  1. NEXPLANON [Suspect]
     Active Substance: ETONOGESTREL
     Indication: CONTRACEPTION
     Dosage: 68 MG, EVERY 3 YEARS
     Route: 059
     Dates: start: 201510, end: 20160826

REACTIONS (19)
  - Migration of implanted drug [Recovered/Resolved]
  - Nausea [Unknown]
  - Device breakage [Unknown]
  - Vulvovaginal dryness [Unknown]
  - Dyspnoea [Unknown]
  - Fatigue [Unknown]
  - Pain [Unknown]
  - Depression [Unknown]
  - Menorrhagia [Unknown]
  - Vomiting [Unknown]
  - Hormone level abnormal [Unknown]
  - Bacterial vaginosis [Unknown]
  - Implant site pain [Unknown]
  - Implant site pruritus [Unknown]
  - Pelvic pain [Unknown]
  - Affect lability [Unknown]
  - Contusion [Unknown]
  - Chest pain [Unknown]
  - Cystitis [Unknown]

NARRATIVE: CASE EVENT DATE: 201511
